FAERS Safety Report 7110484-6 (Version None)
Quarter: 2010Q4

REPORT INFORMATION
  Report Type: 
  Country: None (occurrence: None)
  Receive Date: 20101118
  Receipt Date: 20100915
  Transmission Date: 20110411
  Serious: No
  Sender: FDA-Public Use
  Company Number: US-MYLANLABS-2010S1017083

PATIENT
  Age: 61 Year
  Sex: Female

DRUGS (3)
  1. SUMATRIPTAN SUCCINATE [Suspect]
     Indication: MIGRAINE
     Route: 048
     Dates: start: 20100801
  2. SUMATRIPTAN SUCCINATE [Suspect]
     Route: 048
     Dates: start: 20100801
  3. TYLENOL W/ CODEINE [Concomitant]
     Indication: MIGRAINE
     Route: 048

REACTIONS (2)
  - DRUG INEFFECTIVE [None]
  - MIGRAINE [None]
